FAERS Safety Report 8369577-8 (Version None)
Quarter: 2012Q2

REPORT INFORMATION
  Report Type: 
  Country: None (occurrence: None)
  Receive Date: 20120518
  Receipt Date: 20120503
  Transmission Date: 20120825
  Serious: Yes (Death, Life-Threatening, Hospitalization, Other)
  Sender: FDA-Public Use
  Company Number: US-MYLANLABS-2009AC000246

PATIENT
  Sex: Male
  Weight: 118.39 kg

DRUGS (28)
  1. DIGOXIN [Suspect]
     Indication: CARDIAC FAILURE CONGESTIVE
     Route: 048
     Dates: start: 20030403, end: 10071010
  2. LASIX [Concomitant]
  3. ZOSYN [Concomitant]
  4. LEVAQUIN [Concomitant]
  5. INSULIN [Concomitant]
  6. BENICAR [Concomitant]
  7. METOPROLOL [Concomitant]
  8. VYTORIN [Concomitant]
  9. FUROSEMIDE [Concomitant]
  10. INTEGRILIN [Concomitant]
  11. DIGOXIN [Suspect]
     Indication: ATRIAL FIBRILLATION
     Route: 048
     Dates: start: 20030403, end: 10071010
  12. TOPROL-XL [Concomitant]
  13. HEPARIN [Concomitant]
  14. CAPTOPRIL [Concomitant]
  15. DIOVAN [Concomitant]
  16. AMIODARONE HCL [Concomitant]
  17. METFORMIN HCL [Concomitant]
  18. CEPHALEXIN [Concomitant]
  19. MICRO-K [Concomitant]
  20. LIDOCAINE [Concomitant]
  21. PROTONIX [Concomitant]
  22. LOVENOX [Concomitant]
  23. HYDRALAZINE HCL [Concomitant]
  24. ASPIRIN [Concomitant]
  25. NITROGLYCERIN [Concomitant]
  26. COLACE [Concomitant]
  27. LIPITOR [Concomitant]
  28. DARVOCET-N 50 [Concomitant]

REACTIONS (79)
  - PAIN [None]
  - ANXIETY [None]
  - RESPIRATORY FAILURE [None]
  - CATHETERISATION CARDIAC [None]
  - TYPE 2 DIABETES MELLITUS [None]
  - DISEASE RECURRENCE [None]
  - CARDIAC FAILURE CONGESTIVE [None]
  - LABORATORY TEST ABNORMAL [None]
  - CORONARY ARTERY STENOSIS [None]
  - GLUCOSE TOLERANCE IMPAIRED [None]
  - NERVOUS SYSTEM DISORDER [None]
  - NO THERAPEUTIC RESPONSE [None]
  - HYPOXIC-ISCHAEMIC ENCEPHALOPATHY [None]
  - COMA [None]
  - ABDOMINAL PAIN [None]
  - BRAIN INJURY [None]
  - CARDIAC DISORDER [None]
  - CARDIOMEGALY [None]
  - DILATATION VENTRICULAR [None]
  - HYPERLIPIDAEMIA [None]
  - LUNG INFILTRATION [None]
  - OSTEOARTHRITIS [None]
  - RESTRICTIVE PULMONARY DISEASE [None]
  - SCAN MYOCARDIAL PERFUSION ABNORMAL [None]
  - SUPRAVENTRICULAR EXTRASYSTOLES [None]
  - URINARY TRACT INFECTION BACTERIAL [None]
  - DEATH [None]
  - ATRIOVENTRICULAR BLOCK [None]
  - ARTHRALGIA [None]
  - DRUG INEFFECTIVE [None]
  - HYPERGLYCAEMIA [None]
  - JOINT EFFUSION [None]
  - PNEUMONIA ASPIRATION [None]
  - INJURY [None]
  - FATIGUE [None]
  - SINUS BRADYCARDIA [None]
  - AKINESIA [None]
  - CARDIOVERSION [None]
  - ELECTROCARDIOGRAM ABNORMAL [None]
  - LIFE SUPPORT [None]
  - MECHANICAL VENTILATION [None]
  - ECONOMIC PROBLEM [None]
  - ANHEDONIA [None]
  - COUGH [None]
  - ARRHYTHMIA [None]
  - BUNDLE BRANCH BLOCK LEFT [None]
  - CONDUCTION DISORDER [None]
  - PULSELESS ELECTRICAL ACTIVITY [None]
  - HYPERTENSION [None]
  - DILATATION ATRIAL [None]
  - WEIGHT DECREASED [None]
  - TOXICITY TO VARIOUS AGENTS [None]
  - EMOTIONAL DISTRESS [None]
  - VENTRICULAR TACHYCARDIA [None]
  - CARDIAC VALVE DISEASE [None]
  - MYOCARDIAL ISCHAEMIA [None]
  - ACQUIRED DIAPHRAGMATIC EVENTRATION [None]
  - EJECTION FRACTION DECREASED [None]
  - ENDOTRACHEAL INTUBATION [None]
  - OBESITY [None]
  - IRRITABILITY [None]
  - CARDIAC ARREST [None]
  - VENTRICULAR FIBRILLATION [None]
  - CIRCULATORY COLLAPSE [None]
  - CORONARY ARTERY DISEASE [None]
  - MYOCLONUS [None]
  - SCAR [None]
  - THROMBOCYTOPENIA [None]
  - VENTRICULAR EXTRASYSTOLES [None]
  - ILL-DEFINED DISORDER [None]
  - CARDIO-RESPIRATORY ARREST [None]
  - VENTRICULAR HYPOKINESIA [None]
  - MYOCARDIAL INFARCTION [None]
  - DYSPNOEA [None]
  - EXERCISE TOLERANCE DECREASED [None]
  - LEFT VENTRICULAR DYSFUNCTION [None]
  - PULMONARY VASCULAR DISORDER [None]
  - RESUSCITATION [None]
  - WEIGHT INCREASED [None]
